FAERS Safety Report 7339927-X (Version None)
Quarter: 2011Q1

REPORT INFORMATION
  Report Type: 
  Country: None (occurrence: None)
  Receive Date: 20110309
  Receipt Date: 20110223
  Transmission Date: 20110831
  Serious: Yes (Other)
  Sender: FDA-Public Use
  Company Number: GB-RANBAXY-2011R1-42010

PATIENT

DRUGS (3)
  1. PARACETAMOL [Concomitant]
     Indication: HEADACHE
     Route: 065
  2. SUMATRIPTAN AND NAPROXEN SODIUM [Suspect]
     Indication: HEADACHE
     Route: 065
  3. DIPYRIDAMOLE [Suspect]
     Indication: HEADACHE
     Dosage: 200MG, UNK
     Route: 065

REACTIONS (6)
  - THROMBOCYTOPENIA [None]
  - PYREXIA [None]
  - MUSCULAR WEAKNESS [None]
  - PARAESTHESIA [None]
  - ISCHAEMIC STROKE [None]
  - NAUSEA [None]
